FAERS Safety Report 8021971-0 (Version None)
Quarter: 2012Q1

REPORT INFORMATION
  Report Type: 
  Country: None (occurrence: None)
  Receive Date: 20120104
  Receipt Date: 20111229
  Transmission Date: 20120608
  Serious: Yes (Hospitalization)
  Sender: FDA-Public Use
  Company Number: PHHY2011IT113522

PATIENT
  Sex: Female

DRUGS (1)
  1. AMOXICILLIN [Suspect]

REACTIONS (5)
  - RASH GENERALISED [None]
  - DIARRHOEA [None]
  - ANGIOEDEMA [None]
  - ABDOMINAL PAIN [None]
  - NAUSEA [None]
